FAERS Safety Report 4666977-4 (Version None)
Quarter: 2005Q2

REPORT INFORMATION
  Report Type: 
  Country: None (occurrence: None)
  Receive Date: 20050518
  Receipt Date: 20050226
  Transmission Date: 20051028
  Serious: Yes (Other)
  Sender: FDA-Public Use
  Company Number: 2005037916

PATIENT
  Age: 36 Year
  Sex: 0
  Weight: 57.6068 kg

DRUGS (2)
  1. DEPO-PROVERA [Suspect]
     Indication: ILL-DEFINED DISORDER
     Dosage: SEE IMAGE
     Route: 030
     Dates: start: 20010801, end: 20010801
  2. DEPO-PROVERA [Suspect]
     Indication: ILL-DEFINED DISORDER
     Dosage: SEE IMAGE
     Route: 030
     Dates: start: 20050101, end: 20050101

REACTIONS (4)
  - AMENORRHOEA [None]
  - DEPRESSION [None]
  - HYPERHIDROSIS [None]
  - METRORRHAGIA [None]
